FAERS Safety Report 22636771 (Version 1)
Quarter: 2023Q2

REPORT INFORMATION
  Report Type: Spontaneous
  Country: US (occurrence: None)
  Receive Date: 20230621
  Receipt Date: 20230621
  Transmission Date: 20230722
  Serious: Yes (Hospitalization)
  Sender: FDA-Public Use
  Company Number: None

PATIENT
  Sex: Female

DRUGS (10)
  1. PROLIA [Suspect]
     Active Substance: DENOSUMAB
     Indication: Hypoglycaemia
     Dosage: OTHER FREQUENCY : EVERY 6 MONTHS;?
     Dates: start: 20160107
  2. CELEXA [Concomitant]
     Active Substance: CITALOPRAM HYDROBROMIDE
  3. COUMADIN [Concomitant]
     Active Substance: WARFARIN SODIUM
  4. DILANTIN [Concomitant]
     Active Substance: PHENYTOIN
  5. FIORICET [Concomitant]
     Active Substance: ACETAMINOPHEN\BUTALBITAL\CAFFEINE
  6. KLONOPIN [Concomitant]
     Active Substance: CLONAZEPAM
  7. PHENOBARBITAL SODIUM [Concomitant]
     Active Substance: PHENOBARBITAL SODIUM
  8. PROTONIX [Concomitant]
     Active Substance: PANTOPRAZOLE SODIUM
  9. SYNTHROID [Concomitant]
     Active Substance: LEVOTHYROXINE SODIUM
  10. TRIMETHOPRIM [Concomitant]
     Active Substance: TRIMETHOPRIM

REACTIONS (2)
  - Cerebrovascular accident [None]
  - Limb injury [None]

NARRATIVE: CASE EVENT DATE: 20230201
